FAERS Safety Report 7237330-4 (Version None)
Quarter: 2011Q1

REPORT INFORMATION
  Report Type: 
  Country: None (occurrence: None)
  Receive Date: 20110121
  Receipt Date: 20110113
  Transmission Date: 20110831
  Serious: Yes (Hospitalization)
  Sender: FDA-Public Use
  Company Number: US-ASTRAZENECA-2011SE02445

PATIENT
  Age: 30 Year
  Sex: Male

DRUGS (4)
  1. ZOLOFT [Concomitant]
     Dosage: 50-200 MG
     Route: 048
     Dates: start: 20040801
  2. REMERON [Concomitant]
     Route: 048
     Dates: start: 20040801
  3. KLONOPIN [Concomitant]
     Route: 048
     Dates: start: 20040901
  4. SEROQUEL [Suspect]
     Dosage: 25-100 MG QHS
     Route: 048
     Dates: start: 20010312

REACTIONS (6)
  - SUICIDAL IDEATION [None]
  - DYSLIPIDAEMIA [None]
  - MAJOR DEPRESSION [None]
  - BLOOD PRESSURE [None]
  - TYPE 2 DIABETES MELLITUS [None]
  - OBSESSIVE-COMPULSIVE DISORDER [None]
